FAERS Safety Report 24885826 (Version 2)
Quarter: 2025Q1

REPORT INFORMATION
  Report Type: Report from Study
  Country: US (occurrence: US)
  Receive Date: 20250125
  Receipt Date: 20250212
  Transmission Date: 20250409
  Serious: Yes (Other)
  Sender: ABBVIE
  Company Number: US-ABBVIE-5942705

PATIENT
  Age: 55 Year
  Sex: Male

DRUGS (2)
  1. HUMIRA [Suspect]
     Active Substance: ADALIMUMAB
     Indication: Rheumatoid arthritis
     Route: 058
  2. HUMIRA [Suspect]
     Active Substance: ADALIMUMAB
     Route: 058
     Dates: start: 20240507

REACTIONS (7)
  - Carpal tunnel syndrome [Recovering/Resolving]
  - Nerve compression [Unknown]
  - Pharyngitis streptococcal [Unknown]
  - Pain in extremity [Recovering/Resolving]
  - Upper respiratory tract infection [Recovering/Resolving]
  - Carpal tunnel syndrome [Recovering/Resolving]
  - Back pain [Unknown]

NARRATIVE: CASE EVENT DATE: 20240801
